FAERS Safety Report 4661217-4 (Version None)
Quarter: 2005Q2

REPORT INFORMATION
  Report Type: 
  Country: None (occurrence: None)
  Receive Date: 20050513
  Receipt Date: 20041222
  Transmission Date: 20051028
  Serious: Yes (Other)
  Sender: FDA-Public Use
  Company Number: PHNU2004DE04300

PATIENT
  Age: 73 Year
  Sex: Female

DRUGS (2)
  1. ESIDRIX [Suspect]
     Indication: HYPERTENSION
     Dosage: 1 DF, QD
     Route: 048
     Dates: start: 20050113
  2. PANKREOFLAT [Concomitant]

REACTIONS (7)
  - BLOOD POTASSIUM DECREASED [None]
  - ELECTROCARDIOGRAM ST SEGMENT DEPRESSION [None]
  - HYPERHIDROSIS [None]
  - NIGHT SWEATS [None]
  - SLEEP DISORDER [None]
  - VENTRICULAR EXTRASYSTOLES [None]
  - VENTRICULAR HYPERTROPHY [None]
